FAERS Safety Report 6531525-0 (Version None)
Quarter: 2009Q4

REPORT INFORMATION
  Report Type: 
  Country: None (occurrence: None)
  Receive Date: 20091222
  Receipt Date: 20091013
  Transmission Date: 20100525
  Serious: No
  Sender: FDA-Public Use
  Company Number: ALL1-2009-03183

PATIENT
  Age: 6 Year
  Sex: Female
  Weight: 22.7 kg

DRUGS (3)
  1. DAYTRANA [Suspect]
     Indication: ATTENTION DEFICIT/HYPERACTIVITY DISORDER
     Dosage: 10 MG, 1X/DAY:QD, TRANSDERMAL ; 15 MG, 1X/DAY:QD, TRANSDERMAL
     Route: 062
     Dates: start: 20070101, end: 20070101
  2. DAYTRANA [Suspect]
     Indication: ATTENTION DEFICIT/HYPERACTIVITY DISORDER
     Dosage: 10 MG, 1X/DAY:QD, TRANSDERMAL ; 15 MG, 1X/DAY:QD, TRANSDERMAL
     Route: 062
     Dates: start: 20070101, end: 20091010
  3. VYVANSE [Suspect]
     Indication: ATTENTION DEFICIT/HYPERACTIVITY DISORDER
     Dosage: 20 MG, 1X/DAY:QD, ORAL
     Route: 048
     Dates: start: 20091011

REACTIONS (3)
  - DECREASED APPETITE [None]
  - FLUID INTAKE REDUCED [None]
  - WEIGHT INCREASED [None]
